FAERS Safety Report 8505106 (Version 2)
Quarter: 2013Q2

REPORT INFORMATION
  Report Type: Spontaneous
  Country: US (occurrence: None)
  Receive Date: 20120327
  Receipt Date: 20120709
  Transmission Date: 20140414
  Serious: Yes (Other)
  Sender: FDA-Public Use
  Company Number: PHEH2009US09643

PATIENT
  Age: 57 Year
  Sex: Male
  Weight: 83.7 kg

DRUGS (3)
  1. GLEEVEC [Suspect]
     Indication: CHRONIC MYELOID LEUKAEMIA
     Route: 048
     Dates: start: 200909
  2. BABY ASPIRIN (ACETYLSALICYLIC ACID) [Concomitant]
  3. VITAMINS [Concomitant]

REACTIONS (5)
  - PAIN [None]
  - ARTHRALGIA [None]
  - MYALGIA [None]
  - NAUSEA [None]
  - Enteritis [None]
